FAERS Safety Report 10711331 (Version 2)
Quarter: 2015Q1

REPORT INFORMATION
  Report Type: Report from Study
  Country: ES (occurrence: SE)
  Receive Date: 20150114
  Receipt Date: 20150227
  Transmission Date: 20150721
  Serious: Yes (Other)
  Sender: FDA-Public Use
  Company Number: SE-FRI-1000073661

PATIENT
  Age: 70 Year
  Sex: Male

DRUGS (8)
  1. OMEPRAZOLE. [Concomitant]
     Active Substance: OMEPRAZOLE
     Dosage: 20 MG
  2. METOPROLOL [Concomitant]
     Active Substance: METOPROLOL
     Dosage: 50 MG
  3. LIPITOR [Concomitant]
     Active Substance: ATORVASTATIN CALCIUM
     Dosage: 20 MG
  4. ATACAND [Concomitant]
     Active Substance: CANDESARTAN CILEXETIL
     Dosage: 32 MG
  5. LASIX [Concomitant]
     Active Substance: FUROSEMIDE
     Dosage: 60 MG
  6. WARAN [Concomitant]
     Active Substance: WARFARIN SODIUM
     Dosage: 2.5 SPECIAL SHEDULE
  7. ACLIDINIUM [Suspect]
     Active Substance: ACLIDINIUM BROMIDE
     Indication: CHRONIC OBSTRUCTIVE PULMONARY DISEASE
     Dosage: 2 DOSAGE FORMS
     Dates: start: 20140826, end: 20140930
  8. AMLODIPIN [Concomitant]
     Active Substance: AMLODIPINE BESYLATE
     Dosage: 10 MG

REACTIONS (3)
  - Nausea [Unknown]
  - Retching [Unknown]
  - Headache [Unknown]

NARRATIVE: CASE EVENT DATE: 20140930
